FAERS Safety Report 7573146-7 (Version None)
Quarter: 2011Q2

REPORT INFORMATION
  Report Type: 
  Country: None (occurrence: None)
  Receive Date: 20110627
  Receipt Date: 20110620
  Transmission Date: 20111010
  Serious: Yes (Hospitalization)
  Sender: FDA-Public Use
  Company Number: FR-BRISTOL-MYERS SQUIBB COMPANY-15848575

PATIENT
  Age: 91 Year
  Sex: Female

DRUGS (6)
  1. LEVOTHYROXINE SODIUM [Concomitant]
  2. RAMIPRIL [Concomitant]
  3. FUROSEMIDE [Concomitant]
  4. AMIODARONE HCL [Concomitant]
  5. COUMADIN [Suspect]
     Route: 048
     Dates: end: 20110513
  6. BISOPROLOL FUMARATE [Concomitant]

REACTIONS (7)
  - FALL [None]
  - HAEMATOMA [None]
  - ANAEMIA [None]
  - DEHYDRATION [None]
  - INTERNATIONAL NORMALISED RATIO INCREASED [None]
  - DEPRESSED LEVEL OF CONSCIOUSNESS [None]
  - RECTAL HAEMORRHAGE [None]
